FAERS Safety Report 9898263 (Version 2)
Quarter: 2014Q1

REPORT INFORMATION
  Report Type: Spontaneous
  Country: US (occurrence: US)
  Receive Date: 20140214
  Receipt Date: 20140214
  Transmission Date: 20141002
  Serious: No
  Sender: FDA-Public Use
  Company Number: US-GILEAD-2011-0041089

PATIENT
  Age: 74 Year
  Sex: Female

DRUGS (2)
  1. LETAIRIS [Suspect]
     Indication: PRODUCT USED FOR UNKNOWN INDICATION
     Route: 048
     Dates: start: 20110315
  2. REVATIO [Concomitant]

REACTIONS (5)
  - Chest pain [Unknown]
  - Headache [Unknown]
  - Palpitations [Unknown]
  - Dyspnoea [Unknown]
  - Oedema [Unknown]
